FAERS Safety Report 7860728-8 (Version None)
Quarter: 2011Q4

REPORT INFORMATION
  Report Type: 
  Country: None (occurrence: None)
  Receive Date: 20111027
  Receipt Date: 20111012
  Transmission Date: 20120403
  Serious: Yes (Hospitalization)
  Sender: FDA-Public Use
  Company Number: US-BAYER-2011-051690

PATIENT
  Age: 22 Year
  Sex: Female
  Weight: 88.435 kg

DRUGS (7)
  1. YASMIN [Suspect]
     Indication: CONTRACEPTION
     Dosage: UNK
     Dates: start: 20050101, end: 20070101
  2. ACIPHEX [Concomitant]
     Indication: GASTRIC DISORDER
  3. ACIPHEX [Concomitant]
     Indication: GASTROOESOPHAGEAL REFLUX DISEASE
     Dosage: UNK
     Dates: start: 20040101
  4. YASMIN [Suspect]
     Indication: MENSTRUATION IRREGULAR
  5. VALTREX [Concomitant]
     Indication: HERPES SIMPLEX
     Dosage: UNK
     Dates: start: 20050101
  6. HYOSCYAMINE [Concomitant]
  7. NEXIUM [Concomitant]
     Indication: GASTROOESOPHAGEAL REFLUX DISEASE
     Dosage: UNK
     Dates: start: 20040101

REACTIONS (4)
  - CHOLECYSTITIS CHRONIC [None]
  - GALLBLADDER DISORDER [None]
  - PAIN [None]
  - BILIARY DYSKINESIA [None]
